FAERS Safety Report 4703975-6 (Version None)
Quarter: 2005Q2

REPORT INFORMATION
  Report Type: 
  Country: None (occurrence: None)
  Receive Date: 20050629
  Receipt Date: 20050614
  Transmission Date: 20051028
  Serious: No
  Sender: FDA-Public Use
  Company Number: 11499

PATIENT
  Age: 47 Year
  Sex: Female

DRUGS (3)
  1. FLUOROURACIL [Suspect]
     Indication: BREAST CANCER
     Dosage: 3000MG/M2 TOTAL; UNK
     Route: 065
  2. METHOTREXATE [Suspect]
     Indication: BREAST CANCER
     Dosage: 180 MG/M2 TOTAL; UNK
     Route: 065
  3. CYCLOPHOSPHAMIDE [Suspect]
     Indication: BREAST CANCER
     Dosage: 3000 MG/M2 TOTAL; UNK
     Route: 065

REACTIONS (2)
  - ACUTE PROMYELOCYTIC LEUKAEMIA [None]
  - PULMONARY HAEMORRHAGE [None]
